FAERS Safety Report 7543482-9 (Version None)
Quarter: 2011Q2

REPORT INFORMATION
  Report Type: 
  Country: None (occurrence: None)
  Receive Date: 20110613
  Receipt Date: 20110601
  Transmission Date: 20111010
  Serious: Yes (Other)
  Sender: FDA-Public Use
  Company Number: PHHY2011BR08200

PATIENT
  Sex: Female

DRUGS (2)
  1. DIOVAN HCT [Suspect]
     Indication: HYPERTENSION
     Dosage: 160 MG VALS AND 12.5 MG HYDR, ONE TABLET DAILY
     Route: 048
  2. ANCORON [Concomitant]
     Indication: ARRHYTHMIA

REACTIONS (5)
  - BLOOD PRESSURE FLUCTUATION [None]
  - BREAST CANCER [None]
  - BREAST MASS [None]
  - BLOOD PRESSURE DECREASED [None]
  - BLOOD PRESSURE INCREASED [None]
